FAERS Safety Report 6565394-X (Version None)
Quarter: 2010Q1

REPORT INFORMATION
  Report Type: 
  Country: None (occurrence: None)
  Receive Date: 20100201
  Receipt Date: 20100118
  Transmission Date: 20100710
  Serious: Yes (Hospitalization)
  Sender: FDA-Public Use
  Company Number: DE-MYLANLABS-2010S1000957

PATIENT
  Age: 58 Year
  Sex: Male

DRUGS (6)
  1. ENALAPRIL MALEATE [Interacting]
     Indication: DRUG USE FOR UNKNOWN INDICATION
     Dates: start: 20060101
  2. ENALAPRIL MALEATE AND HYDROCHLOROTHIAZIDE [Suspect]
     Indication: DRUG USE FOR UNKNOWN INDICATION
     Dates: start: 20060101
  3. CIPRALEX [Interacting]
     Indication: DRUG USE FOR UNKNOWN INDICATION
     Dates: start: 20060101, end: 20060204
  4. BISOPROLOL [Concomitant]
     Indication: DRUG USE FOR UNKNOWN INDICATION
     Dates: start: 20060101
  5. ZOPICLONE [Concomitant]
     Indication: DRUG USE FOR UNKNOWN INDICATION
     Dates: start: 20060101, end: 20060211
  6. LORAZEPAM [Concomitant]
     Indication: DRUG USE FOR UNKNOWN INDICATION
     Dosage: 0.5 MG-1MG BEI BEDARF
     Dates: start: 20060203

REACTIONS (2)
  - DRUG INTERACTION [None]
  - HYPONATRAEMIA [None]
